FAERS Safety Report 14123104 (Version 1)
Quarter: 2017Q4

REPORT INFORMATION
  Report Type: Spontaneous
  Country: US (occurrence: US)
  Receive Date: 20171024
  Receipt Date: 20171024
  Transmission Date: 20180321
  Serious: Yes (Other)
  Sender: FDA-Public Use
  Company Number: None

PATIENT
  Sex: Female
  Weight: 61.65 kg

DRUGS (7)
  1. PEG-3350 AND ELECTROLYTES [Suspect]
     Active Substance: POLYETHYLENE GLYCOL 3350\POTASSIUM CHLORIDE\SODIUM BICARBONATE\SODIUM CHLORIDE\SODIUM SULFATE\SODIUM SULFATE ANHYDROUS
     Indication: BOWEL PREPARATION
     Dosage: ?          OTHER FREQUENCY:OVER ONE DAY;?
     Route: 048
     Dates: start: 20170828, end: 20170829
  2. BISACODYL 5 MG TAB [Suspect]
     Active Substance: BISACODYL
     Indication: BOWEL PREPARATION
     Dosage: ?          QUANTITY:2 TABLET(S);OTHER FREQUENCY:ONCE;?
     Route: 048
     Dates: start: 20170828
  3. VITAMIN D [Concomitant]
     Active Substance: CHOLECALCIFEROL
  4. KEPPRA [Concomitant]
     Active Substance: LEVETIRACETAM
  5. LIPITOR [Concomitant]
     Active Substance: ATORVASTATIN CALCIUM
  6. PEG-3350 AND ELECTROLYTES [Suspect]
     Active Substance: POLYETHYLENE GLYCOL 3350\POTASSIUM CHLORIDE\SODIUM BICARBONATE\SODIUM CHLORIDE\SODIUM SULFATE\SODIUM SULFATE ANHYDROUS
     Indication: COLONOSCOPY
     Dosage: ?          OTHER FREQUENCY:OVER ONE DAY;?
     Route: 048
     Dates: start: 20170828, end: 20170829
  7. BISACODYL 5 MG TAB [Suspect]
     Active Substance: BISACODYL
     Indication: COLONOSCOPY
     Dosage: ?          QUANTITY:2 TABLET(S);OTHER FREQUENCY:ONCE;?
     Route: 048
     Dates: start: 20170828

REACTIONS (3)
  - Body temperature abnormal [None]
  - Heart rate decreased [None]
  - Chills [None]

NARRATIVE: CASE EVENT DATE: 20170829
